FAERS Safety Report 12848350 (Version 1)
Quarter: 2016Q4

REPORT INFORMATION
  Report Type: Spontaneous
  Country: US (occurrence: US)
  Receive Date: 20161014
  Receipt Date: 20161014
  Transmission Date: 20170207
  Serious: No
  Sender: FDA-Public Use
  Company Number: US-JNJFOC-20160710304

PATIENT
  Age: 63 Year
  Sex: Female
  Weight: 54.43 kg

DRUGS (1)
  1. TYLENOL EXTRA STRENGTH [Suspect]
     Active Substance: ACETAMINOPHEN
     Indication: HEADACHE
     Dosage: ABOUT EVERY 4 HOURS, 6 TO 8 TABLETS TOTAL IN A DAY
     Route: 048

REACTIONS (1)
  - Blood pressure increased [Not Recovered/Not Resolved]
